FAERS Safety Report 4735308-3 (Version None)
Quarter: 2005Q3

REPORT INFORMATION
  Report Type: 
  Country: None (occurrence: None)
  Receive Date: 20050805
  Receipt Date: 20050726
  Transmission Date: 20060218
  Serious: Yes (Other)
  Sender: FDA-Public Use
  Company Number: FR-BRISTOL-MYERS SQUIBB COMPANY-13053830

PATIENT
  Age: 45 Year
  Sex: Male
  Weight: 66 kg

DRUGS (4)
  1. REYATAZ [Suspect]
     Indication: HIV TEST POSITIVE
     Route: 048
     Dates: start: 20050118
  2. VIDEX [Suspect]
     Indication: HIV TEST POSITIVE
     Dates: start: 20050118
  3. NORVIR [Suspect]
     Indication: HIV TEST POSITIVE
     Dates: start: 20050118
  4. DEPAKENE [Concomitant]

REACTIONS (1)
  - GASTRIC ULCER [None]
